FAERS Safety Report 7804198-4 (Version None)
Quarter: 2011Q4

REPORT INFORMATION
  Report Type: 
  Country: None (occurrence: None)
  Receive Date: 20111010
  Receipt Date: 20111003
  Transmission Date: 20120403
  Serious: Yes (Hospitalization, Other)
  Sender: FDA-Public Use
  Company Number: IT-SANOFI-AVENTIS-2011SA044089

PATIENT
  Age: 76 Year
  Sex: Female
  Weight: 78 kg

DRUGS (8)
  1. WARFARIN SODIUM [Concomitant]
  2. ROSUVASTATIN [Concomitant]
  3. CARVEDILOL [Concomitant]
  4. FUROSEMIDE [Concomitant]
  5. IRBESARTAN [Concomitant]
  6. GLIBOMET [Concomitant]
  7. INSULIN [Concomitant]
  8. DRONEDARONE HCL [Suspect]
     Indication: ATRIAL FIBRILLATION
     Route: 048
     Dates: start: 20110407, end: 20110411

REACTIONS (3)
  - ACUTE HEPATIC FAILURE [None]
  - CARDIAC FAILURE [None]
  - RENAL FAILURE ACUTE [None]
